FAERS Safety Report 8150052-0 (Version None)
Quarter: 2012Q1

REPORT INFORMATION
  Report Type: 
  Country: None (occurrence: None)
  Receive Date: 20120219
  Receipt Date: 20120207
  Transmission Date: 20120608
  Serious: Yes (Hospitalization)
  Sender: FDA-Public Use
  Company Number: TR-BRISTOL-MYERS SQUIBB COMPANY-16394892

PATIENT
  Age: 19 Year
  Sex: Female

DRUGS (1)
  1. METFORMIN HCL [Suspect]
     Dosage: 250MG/KG BODY WEIGHT , 25 TABS

REACTIONS (4)
  - INTENTIONAL OVERDOSE [None]
  - LACTIC ACIDOSIS [None]
  - SUICIDE ATTEMPT [None]
  - RENAL FAILURE ACUTE [None]
